FAERS Safety Report 7053864-X (Version None)
Quarter: 2010Q4

REPORT INFORMATION
  Report Type: 
  Country: None (occurrence: None)
  Receive Date: 20101020
  Receipt Date: 20101011
  Transmission Date: 20110411
  Serious: Yes (Death, Hospitalization, Other)
  Sender: FDA-Public Use
  Company Number: US-WATSON-2010-12527

PATIENT
  Sex: Male
  Weight: 66.757 kg

DRUGS (3)
  1. FENTANYL-25 [Suspect]
     Indication: PAIN
     Dosage: 2 PATCHES,  Q 72 HRS
     Route: 062
     Dates: start: 20100911, end: 20100920
  2. FENTANYL-25 [Suspect]
     Indication: LUNG NEOPLASM MALIGNANT
  3. OXYCODONE HCL [Concomitant]
     Indication: PAIN
     Dosage: 1-2 TABS Q 4 HOURS, PRN PAIN
     Route: 048

REACTIONS (11)
  - ASTHENIA [None]
  - CARDIAC ARREST [None]
  - CONTUSION [None]
  - DISORIENTATION [None]
  - EXCORIATION [None]
  - FALL [None]
  - HALLUCINATION, VISUAL [None]
  - LOSS OF CONSCIOUSNESS [None]
  - NON-SMALL CELL LUNG CANCER [None]
  - SKIN LACERATION [None]
  - UNRESPONSIVE TO STIMULI [None]
